FAERS Safety Report 10045940 (Version 2)
Quarter: 2014Q1

REPORT INFORMATION
  Report Type: Spontaneous
  Country: US (occurrence: US)
  Receive Date: 20140330
  Receipt Date: 20140330
  Transmission Date: 20141002
  Serious: Yes (Disabling)
  Sender: FDA-Public Use
  Company Number: US-GE HEALTHCARE MEDICAL DIAGNOSTICS-OSCN-PR-1007S-0198

PATIENT
  Age: 57 Year
  Sex: Male

DRUGS (2)
  1. OMNISCAN [Suspect]
     Indication: ARTERIOGRAM RENAL
     Route: 013
     Dates: start: 20021106, end: 20021106
  2. OMNISCAN [Suspect]
     Indication: RENAL TRANSPLANT
     Route: 013
     Dates: start: 20021212, end: 20021212

REACTIONS (1)
  - Nephrogenic systemic fibrosis [Not Recovered/Not Resolved]
